FAERS Safety Report 24413354 (Version 1)
Quarter: 2024Q4

REPORT INFORMATION
  Report Type: Spontaneous
  Country: US (occurrence: US)
  Receive Date: 20241008
  Receipt Date: 20241008
  Transmission Date: 20250115
  Serious: Yes (Hospitalization, Other)
  Sender: GLAXOSMITHKLINE
  Company Number: US-GSK-US2024GSK121717

PATIENT

DRUGS (4)
  1. BUPROPION [Suspect]
     Active Substance: BUPROPION
     Indication: Product used for unknown indication
     Dosage: UNK
     Route: 064
  2. LISINOPRIL [Suspect]
     Active Substance: LISINOPRIL
     Indication: Product used for unknown indication
     Dosage: UNK
     Route: 064
  3. FLUOXETINE [Suspect]
     Active Substance: FLUOXETINE HYDROCHLORIDE
     Indication: Product used for unknown indication
     Dosage: UNK
     Route: 064
  4. LABETALOL [Suspect]
     Active Substance: LABETALOL
     Indication: Product used for unknown indication
     Dosage: UNK
     Route: 064

REACTIONS (18)
  - Nasal necrosis [Recovering/Resolving]
  - Infantile haemangioma [Recovering/Resolving]
  - Caput succedaneum [Recovering/Resolving]
  - Scab [Recovering/Resolving]
  - Nasal flaring [Recovering/Resolving]
  - Ulcer [Recovering/Resolving]
  - Scab [Recovering/Resolving]
  - Scar [Recovering/Resolving]
  - Nasal crusting [Recovering/Resolving]
  - Eschar [Recovering/Resolving]
  - Nasal obstruction [Recovering/Resolving]
  - Neonatal respiratory distress [Recovered/Resolved]
  - Hypoxia [Recovering/Resolving]
  - Large for dates baby [Unknown]
  - Erythema [Recovering/Resolving]
  - Purpura neonatal [Recovering/Resolving]
  - Premature baby [Unknown]
  - Foetal exposure during pregnancy [Unknown]
